FAERS Safety Report 18611317 (Version 2)
Quarter: 2020Q4

REPORT INFORMATION
  Report Type: Spontaneous
  Country: FR (occurrence: FR)
  Receive Date: 20201214
  Receipt Date: 20201217
  Transmission Date: 20210114
  Serious: Yes (Disabling, Other)
  Sender: FDA-Public Use
  Company Number: FR-PFIZER INC-2020486527

PATIENT
  Age: 44 Year
  Sex: Male

DRUGS (6)
  1. EZETIMIBE. [Concomitant]
     Active Substance: EZETIMIBE
     Indication: TYPE IIA HYPERLIPIDAEMIA
     Dosage: 10 MG
  2. ATORVASTATIN CALCIUM. [Suspect]
     Active Substance: ATORVASTATIN CALCIUM
     Indication: TYPE IIA HYPERLIPIDAEMIA
     Dosage: 80 MG (HIGH-DOSE)
  3. ATORVASTATIN CALCIUM. [Suspect]
     Active Substance: ATORVASTATIN CALCIUM
     Indication: LOW DENSITY LIPOPROTEIN APHERESIS
     Dosage: 20 MG
  4. CLOPIDOGREL [Concomitant]
     Active Substance: CLOPIDOGREL BISULFATE
     Indication: TYPE IIA HYPERLIPIDAEMIA
     Dosage: 75 MG
  5. NEBIVOLOL. [Concomitant]
     Active Substance: NEBIVOLOL
     Indication: TYPE IIA HYPERLIPIDAEMIA
     Dosage: 5 MG
  6. EZETIMIBE. [Concomitant]
     Active Substance: EZETIMIBE
     Indication: LOW DENSITY LIPOPROTEIN APHERESIS

REACTIONS (4)
  - Arthralgia [Unknown]
  - Drug intolerance [Unknown]
  - Myalgia [Unknown]
  - Physical disability [Unknown]
